FAERS Safety Report 14903950 (Version 1)
Quarter: 2018Q2

REPORT INFORMATION
  Report Type: Spontaneous
  Country: DE (occurrence: DE)
  Receive Date: 20180516
  Receipt Date: 20180516
  Transmission Date: 20180711
  Serious: Yes (Death, Hospitalization, Other)
  Sender: FDA-Public Use
  Company Number: DE-ABBVIE-18P-062-2292726-00

PATIENT
  Age: 75 Year
  Sex: Male

DRUGS (4)
  1. HARVONI [Suspect]
     Active Substance: LEDIPASVIR\SOFOSBUVIR
     Indication: HEPATITIS C
     Dosage: 1 DF, UNK?LEDIPASVIR (90 MG) / SOFUSBOVIR (400 MG)
     Route: 065
     Dates: start: 201510
  2. PREDNISONE. [Concomitant]
     Active Substance: PREDNISONE
     Indication: IMMUNOSUPPRESSION
     Dosage: 5 MG, QD
  3. RIBAVIRIN. [Suspect]
     Active Substance: RIBAVIRIN
     Indication: HEPATITIS C
     Route: 065
     Dates: start: 201510
  4. TACROLIMUS. [Concomitant]
     Active Substance: TACROLIMUS
     Indication: IMMUNOSUPPRESSION
     Dosage: 0.5 MG, QD

REACTIONS (8)
  - Infection [Unknown]
  - Hepatocellular carcinoma [Fatal]
  - Tumour cell mobilisation [Not Recovered/Not Resolved]
  - Immunosuppression [Unknown]
  - Anaemia [Unknown]
  - Glomerular filtration rate decreased [Unknown]
  - Decreased appetite [Unknown]
  - Asthenia [Unknown]
